FAERS Safety Report 18564009 (Version 8)
Quarter: 2023Q4

REPORT INFORMATION
  Report Type: Report from Study
  Country: US (occurrence: US)
  Receive Date: 20201201
  Receipt Date: 20231101
  Transmission Date: 20240110
  Serious: Yes (Hospitalization, Other)
  Sender: FDA-Public Use
  Company Number: US-TAKEDA-US201931096

PATIENT
  Sex: Female

DRUGS (2)
  1. HUMAN IMMUNOGLOBULIN G [Suspect]
     Active Substance: HUMAN IMMUNOGLOBULIN G
     Indication: Primary immunodeficiency syndrome
     Dosage: 20 GRAM, QD
     Route: 042
  2. HUMAN IMMUNOGLOBULIN G [Suspect]
     Active Substance: HUMAN IMMUNOGLOBULIN G
     Indication: Immunodeficiency common variable
     Dosage: 20 GRAM, Q3WEEKS
     Route: 042

REACTIONS (15)
  - COVID-19 [Recovering/Resolving]
  - Autoimmune disorder [Unknown]
  - Seizure [Unknown]
  - Stiff person syndrome [Unknown]
  - Dermatitis contact [Unknown]
  - Multiple allergies [Unknown]
  - Lung disorder [Unknown]
  - Cardiac disorder [Unknown]
  - Blood disorder [Unknown]
  - General physical health deterioration [Unknown]
  - Musculoskeletal stiffness [Unknown]
  - Influenza [Unknown]
  - Chest discomfort [Unknown]
  - Stress [Unknown]
  - Blood pressure decreased [Unknown]
